FAERS Safety Report 8554967 (Version 4)
Quarter: 2012Q4

REPORT INFORMATION
  Report Type: 
  Country: DE (occurrence: DE)
  Receive Date: 20120510
  Receipt Date: 20121022
  Transmission Date: 20130627
  Serious: Yes (Hospitalization, Other)
  Sender: FDA-Public Use
  Company Number: DE-JNJFOC-20120507239

PATIENT
  Age: 72 Year
  Sex: Female

DRUGS (6)
  1. GOLIMUMAB [Suspect]
     Indication: RHEUMATOID ARTHRITIS
     Route: 058
     Dates: start: 20101104, end: 20111216
  2. METHOTREXATE [Concomitant]
  3. FOLIC ACID [Concomitant]
  4. PREDNISOLONE [Concomitant]
  5. PANTOPRAZOLE [Concomitant]
     Dates: start: 201112
  6. TRAMAGIT [Concomitant]
     Dates: start: 201008

REACTIONS (2)
  - Leg amputation [Recovered/Resolved]
  - Varicose ulceration [Recovered/Resolved]
